FAERS Safety Report 5496408-6 (Version None)
Quarter: 2007Q4

REPORT INFORMATION
  Report Type: 
  Country: None (occurrence: None)
  Receive Date: 20071025
  Receipt Date: 20070531
  Transmission Date: 20080405
  Serious: No
  Sender: FDA-Public Use
  Company Number: A0646069A

PATIENT
  Age: 77 Year
  Sex: Male

DRUGS (5)
  1. ADVAIR DISKUS 100/50 [Suspect]
     Indication: ASTHMA
     Dosage: 2PUFF TWICE PER DAY
     Route: 055
  2. LIPITOR [Concomitant]
  3. TOPROL-XL [Concomitant]
  4. CHLORTHALIDONE [Concomitant]
  5. ASPIRIN [Concomitant]

REACTIONS (4)
  - DYSPNOEA [None]
  - DYSSTASIA [None]
  - FATIGUE [None]
  - PHARMACEUTICAL PRODUCT COMPLAINT [None]
